FAERS Safety Report 24416955 (Version 1)
Quarter: 2024Q4

REPORT INFORMATION
  Report Type: Spontaneous
  Country: US (occurrence: None)
  Receive Date: 20241008
  Receipt Date: 20241008
  Transmission Date: 20250115
  Serious: Yes (Other)
  Sender: Public
  Company Number: None

PATIENT
  Age: 55 Year
  Sex: Female
  Weight: 73.48 kg

DRUGS (7)
  1. MINOCYCLINE [Suspect]
     Active Substance: MINOCYCLINE HYDROCHLORIDE
  2. MACROBID [Suspect]
     Active Substance: NITROFURANTOIN\NITROFURANTOIN MONOHYDRATE
  3. Wellbutrin XL [Concomitant]
  4. Adderayl XR [Concomitant]
  5. Advil PM [Concomitant]
  6. Laxatives [Concomitant]
  7. Multi vitamin for women [Concomitant]

REACTIONS (4)
  - Respiratory tract congestion [None]
  - Influenza like illness [None]
  - Lung disorder [None]
  - Viral infection [None]

NARRATIVE: CASE EVENT DATE: 20241008
